FAERS Safety Report 5036294-1 (Version None)
Quarter: 2006Q2

REPORT INFORMATION
  Report Type: 
  Country: None (occurrence: None)
  Receive Date: 20060601
  Receipt Date: 20051213
  Transmission Date: 20061013
  Serious: No
  Sender: FDA-Public Use
  Company Number: US200512002255

PATIENT
  Age: 50 Year
  Sex: Male

DRUGS (3)
  1. CYMBALTA [Suspect]
     Indication: NEUROPATHY
     Dosage: 120 MG, EACH EVENING, ORAL
     Route: 048
     Dates: start: 20050101
  2. CLONIDINE [Concomitant]
  3. AMBIEN [Concomitant]

REACTIONS (10)
  - BRADYPHRENIA [None]
  - DISTURBANCE IN ATTENTION [None]
  - DIZZINESS [None]
  - HYPOAESTHESIA [None]
  - LETHARGY [None]
  - LIBIDO DECREASED [None]
  - MALAISE [None]
  - MIGRAINE [None]
  - PHOTOPHOBIA [None]
  - VOMITING [None]
